FAERS Safety Report 16761540 (Version 1)
Quarter: 2019Q3

REPORT INFORMATION
  Report Type: Spontaneous
  Country: US (occurrence: US)
  Receive Date: 20190830
  Receipt Date: 20190830
  Transmission Date: 20191005
  Serious: Yes (Hospitalization)
  Sender: FDA-Public Use
  Company Number: PHHY2019US202093

PATIENT
  Age: 57 Year
  Sex: Female

DRUGS (1)
  1. VALPROIC ACID. [Suspect]
     Active Substance: VALPROIC ACID
     Indication: CHOREA
     Dosage: UNK
     Route: 065

REACTIONS (9)
  - Thrombocytopenia [Recovering/Resolving]
  - Mouth haemorrhage [Unknown]
  - Anaemia [Unknown]
  - Product use in unapproved indication [Unknown]
  - Contusion [Unknown]
  - Periorbital haemorrhage [Unknown]
  - Ecchymosis [Unknown]
  - Vaginal haemorrhage [Unknown]
  - Subdural haemorrhage [Unknown]
